FAERS Safety Report 21831093 (Version 2)
Quarter: 2023Q1

REPORT INFORMATION
  Report Type: Spontaneous
  Country: US (occurrence: US)
  Receive Date: 20230106
  Receipt Date: 20230110
  Transmission Date: 20230417
  Serious: Yes (Other)
  Sender: FDA-Public Use
  Company Number: US-PFIZER INC-PV202300002159

PATIENT
  Age: 80 Year
  Sex: Male
  Weight: 92.99 kg

DRUGS (1)
  1. VYNDAMAX [Suspect]
     Active Substance: TAFAMIDIS
     Indication: Cardiac amyloidosis
     Dosage: 61 MG, 1X/DAY
     Dates: start: 202209

REACTIONS (2)
  - Patella fracture [Recovering/Resolving]
  - Impaired driving ability [Unknown]

NARRATIVE: CASE EVENT DATE: 20221223
